FAERS Safety Report 20211596 (Version 1)
Quarter: 2021Q4

REPORT INFORMATION
  Report Type: Spontaneous
  Country: NZ (occurrence: NZ)
  Receive Date: 20211221
  Receipt Date: 20211221
  Transmission Date: 20220303
  Serious: Yes (Other)
  Sender: FDA-Public Use
  Company Number: NZ-NOVARTISPH-NVSC2021NZ292031

PATIENT
  Sex: Female

DRUGS (1)
  1. COSENTYX [Suspect]
     Active Substance: SECUKINUMAB
     Indication: Psoriasis
     Dosage: UNK
     Route: 065

REACTIONS (1)
  - Thrombocytopenia [Unknown]
